FAERS Safety Report 5765487-0 (Version None)
Quarter: 2008Q2

REPORT INFORMATION
  Report Type: 
  Country: None (occurrence: None)
  Receive Date: 20080611
  Receipt Date: 20080606
  Transmission Date: 20081010
  Serious: Yes (Other)
  Sender: FDA-Public Use
  Company Number: B0522777A

PATIENT
  Age: 37 Year
  Sex: Female

DRUGS (3)
  1. RANITIDINE [Suspect]
     Dosage: 100MG PER DAY
     Route: 065
  2. QUETIAPINE FUMARATE [Concomitant]
     Dosage: 75MG PER DAY
     Route: 065
  3. RANITIDINE [Concomitant]
     Dosage: 4MG PER DAY
     Route: 065

REACTIONS (2)
  - HEPATIC ENZYME INCREASED [None]
  - LIVER INJURY [None]
